FAERS Safety Report 26218815 (Version 1)
Quarter: 2025Q4

REPORT INFORMATION
  Report Type: Spontaneous
  Country: US (occurrence: US)
  Receive Date: 20251231
  Receipt Date: 20251231
  Transmission Date: 20260118
  Serious: No
  Sender: SENTISS AG
  Company Number: US-SENTISSAG-2025SAGSPO-00022

PATIENT
  Age: 75 Year
  Sex: Male
  Weight: 170 kg

DRUGS (1)
  1. ERYTHROMYCIN [Suspect]
     Active Substance: ERYTHROMYCIN
     Indication: Hordeolum
     Route: 047
     Dates: start: 20251224, end: 20251224

REACTIONS (3)
  - Eye swelling [Not Recovered/Not Resolved]
  - Feeling abnormal [Unknown]
  - Eye irritation [Not Recovered/Not Resolved]

NARRATIVE: CASE EVENT DATE: 20251224
